FAERS Safety Report 8214867-2 (Version None)
Quarter: 2012Q1

REPORT INFORMATION
  Report Type: 
  Country: None (occurrence: None)
  Receive Date: 20120316
  Receipt Date: 20120309
  Transmission Date: 20120608
  Serious: Yes (Hospitalization)
  Sender: FDA-Public Use
  Company Number: JP-JNJFOC-20120306357

PATIENT
  Sex: Female
  Weight: 40 kg

DRUGS (1)
  1. METHYLPHENIDATE HCL [Suspect]
     Indication: ATTENTION DEFICIT/HYPERACTIVITY DISORDER
     Route: 048
     Dates: start: 20111208, end: 20120308

REACTIONS (1)
  - SCHIZOPHRENIA [None]
